FAERS Safety Report 14368588 (Version 3)
Quarter: 2018Q1

REPORT INFORMATION
  Report Type: Spontaneous
  Country: US (occurrence: US)
  Receive Date: 20180109
  Receipt Date: 20180315
  Transmission Date: 20180509
  Serious: Yes (Hospitalization)
  Sender: FDA-Public Use
  Company Number: US-ACTELION-A-NJ2018-165266

PATIENT
  Age: 57 Year
  Sex: Female

DRUGS (3)
  1. UPTRAVI [Suspect]
     Active Substance: SELEXIPAG
     Indication: PULMONARY ARTERIAL HYPERTENSION
     Dosage: 1200 MCG, BID
     Route: 048
  2. OPSUMIT [Suspect]
     Active Substance: MACITENTAN
     Indication: PULMONARY ARTERIAL HYPERTENSION
     Dosage: 10 MG, QD
     Route: 048
     Dates: start: 20170215
  3. ADCIRCA [Concomitant]
     Active Substance: TADALAFIL

REACTIONS (8)
  - Diarrhoea [Unknown]
  - Pulmonary oedema [Unknown]
  - Pain in jaw [Unknown]
  - Arthralgia [Unknown]
  - Asthenia [Unknown]
  - Cardiac failure [Unknown]
  - Myalgia [Unknown]
  - Dyspnoea [Unknown]
